FAERS Safety Report 4679587-X (Version None)
Quarter: 2005Q2

REPORT INFORMATION
  Report Type: 
  Country: None (occurrence: None)
  Receive Date: 20050602
  Receipt Date: 20050525
  Transmission Date: 20051028
  Serious: Yes (Other)
  Sender: FDA-Public Use
  Company Number: BE-BOEHRINGER INGELHEIM PHARMACEUTICALS, INC.-2005-BL-00208BL

PATIENT
  Sex: Male

DRUGS (2)
  1. MICARDIS [Suspect]
     Route: 048
  2. ADALAT [Concomitant]

REACTIONS (1)
  - LOCALISED OEDEMA [None]
